FAERS Safety Report 16208666 (Version 1)
Quarter: 2019Q2

REPORT INFORMATION
  Report Type: Spontaneous
  Country: GB (occurrence: GB)
  Receive Date: 20190417
  Receipt Date: 20190417
  Transmission Date: 20190711
  Serious: Yes (Life-Threatening, Other)
  Sender: FDA-Public Use
  Company Number: GB-TEVA-2019-GB-1037696

PATIENT
  Age: 40 Year
  Sex: Female
  Weight: 132.4 kg

DRUGS (15)
  1. ACETAZOLAMIDE. [Concomitant]
     Active Substance: ACETAZOLAMIDE
     Dosage: 2 DOSAGE FORMS DAILY;
     Dates: start: 20190125
  2. ARIPIPRAZOLE. [Concomitant]
     Active Substance: ARIPIPRAZOLE
     Dosage: 1 DOSAGE FORMS DAILY; 1 WEEK THEN DOSE INCREASES
     Dates: start: 20190130
  3. TOPIRAMATE. [Concomitant]
     Active Substance: TOPIRAMATE
     Dosage: 2 DOSAGE FORMS DAILY;
     Dates: start: 20190125
  4. PARACETAMOL [Concomitant]
     Active Substance: ACETAMINOPHEN
     Dosage: FOUR TIMES A DAY
     Dates: start: 20190125
  5. IBUPROFEN. [Concomitant]
     Active Substance: IBUPROFEN
     Dosage: 3 DOSAGE FORMS DAILY;
     Dates: start: 20181224
  6. AMLODIPINE [Concomitant]
     Active Substance: AMLODIPINE BESYLATE
     Dosage: 1 DOSAGE FORMS DAILY;
     Dates: start: 20190125
  7. PROPRANOLOL [Concomitant]
     Active Substance: PROPRANOLOL HYDROCHLORIDE
     Dosage: 6 DOSAGE FORMS DAILY;
     Dates: start: 20190125
  8. FLUOXETINE [Concomitant]
     Active Substance: FLUOXETINE HYDROCHLORIDE
     Dosage: 2 DOSAGE FORMS DAILY;
     Dates: start: 20190125
  9. DIAZEPAM. [Concomitant]
     Active Substance: DIAZEPAM
     Dosage: 3 DOSAGE FORMS DAILY; FOR 2 WEEKS ONLY
     Dates: start: 20190206
  10. EPIPEN [Concomitant]
     Active Substance: EPINEPHRINE
     Dosage: 300MICROGRAMS/0.3ML
     Dates: start: 20190114
  11. FOLIC ACID. [Concomitant]
     Active Substance: FOLIC ACID
     Dosage: 1 DOSAGE FORMS DAILY; FOR FOUR MONTHS
     Dates: start: 20181224
  12. OMEPRAZOLE. [Concomitant]
     Active Substance: OMEPRAZOLE
     Dosage: 1 DOSAGE FORMS DAILY;
     Dates: start: 20190301
  13. QUETIAPINE. [Suspect]
     Active Substance: QUETIAPINE
     Route: 065
  14. CETIRIZINE [Concomitant]
     Active Substance: CETIRIZINE HYDROCHLORIDE
     Dosage: 1 DOSAGE FORMS DAILY;
     Dates: start: 20190125
  15. ZOLMITRIPTAN. [Concomitant]
     Active Substance: ZOLMITRIPTAN
     Dosage: MAX 2 IN 24 HOURS
     Dates: start: 20190111

REACTIONS (1)
  - Anaphylactic shock [Recovered/Resolved]

NARRATIVE: CASE EVENT DATE: 20190112
